FAERS Safety Report 8361946-5 (Version None)
Quarter: 2012Q2

REPORT INFORMATION
  Report Type: 
  Country: None (occurrence: None)
  Receive Date: 20120515
  Receipt Date: 20120508
  Transmission Date: 20120825
  Serious: Yes (Other)
  Sender: FDA-Public Use
  Company Number: BE-B.I. PHARMACEUTICALS,INC./RIDGEFIELD-2012-BL-00313BL

PATIENT
  Sex: Female
  Weight: 68 kg

DRUGS (2)
  1. PRADAXA [Suspect]
     Indication: ATRIAL FIBRILLATION
     Dosage: 220 MG
     Route: 048
     Dates: start: 20120127, end: 20120416
  2. PRADAXA [Suspect]
     Dosage: 220 MG
     Route: 048
     Dates: start: 20111109, end: 20111114

REACTIONS (3)
  - DIARRHOEA [None]
  - HAEMATOMA [None]
  - ISCHAEMIC STROKE [None]
